FAERS Safety Report 7568233-3 (Version None)
Quarter: 2011Q2

REPORT INFORMATION
  Report Type: 
  Country: None (occurrence: None)
  Receive Date: 20110617
  Receipt Date: 20110601
  Transmission Date: 20111010
  Serious: Yes (Hospitalization, Other)
  Sender: FDA-Public Use
  Company Number: 2011000481

PATIENT
  Age: 77 Year
  Sex: Female
  Weight: 52 kg

DRUGS (18)
  1. ACULAR LS (KETOROLAC TROMETHAMINE) [Concomitant]
  2. ALBUTEROL SULFATE [Concomitant]
  3. COZAAR [Concomitant]
  4. GLIPIZIDE [Concomitant]
  5. ERLOTINIB HYDROCHLORIDE [Suspect]
     Indication: HEPATIC NEOPLASM MALIGNANT
     Dosage: ORAL
     Route: 048
     Dates: start: 20100617
  6. COLCHICINE [Concomitant]
  7. BALANCID (CALCIUM CARBONATE) [Concomitant]
  8. MULTIVITAMIN [Concomitant]
  9. POTASSIUM CHLORIDE [Concomitant]
  10. SORAFENIB (SORAFENIB) TABLET [Suspect]
     Indication: HEPATIC NEOPLASM MALIGNANT
     Dosage: 200 MG, BID, ORAL
     Route: 048
     Dates: start: 20100617
  11. ALLEGRA [Concomitant]
  12. AMBIEN [Concomitant]
  13. NORVASC [Concomitant]
  14. ALBUTEROL [Concomitant]
  15. PERIDEX (CHLORHEXIDINE GLUCONATE) [Concomitant]
  16. VITAMIN D [Concomitant]
  17. IMODIUM (LOPERAMIDE HYDROHLORIDE) [Concomitant]
  18. KETOROLAC (KETOROLAC TROMETHAMINE) [Concomitant]

REACTIONS (7)
  - TREMOR [None]
  - ENCEPHALOPATHY [None]
  - GASTROINTESTINAL HAEMORRHAGE [None]
  - PNEUMONIA [None]
  - DIARRHOEA [None]
  - INFECTION [None]
  - METABOLIC DISORDER [None]
